FAERS Safety Report 24443682 (Version 2)
Quarter: 2024Q4

REPORT INFORMATION
  Report Type: Report from Study
  Country: US (occurrence: US)
  Receive Date: 20241016
  Receipt Date: 20241017
  Transmission Date: 20250115
  Serious: No
  Sender: ROCHE
  Company Number: US-ROCHE-1909548

PATIENT
  Age: 42 Year
  Sex: Female
  Weight: 121.62 kg

DRUGS (2)
  1. RITUXAN [Suspect]
     Active Substance: RITUXIMAB
     Indication: Polyarthritis
     Dosage: DAY 1 AND DAY 15
     Route: 042
     Dates: start: 20180220
  2. RITUXAN [Suspect]
     Active Substance: RITUXIMAB
     Indication: Systemic lupus erythematosus
     Dosage: INFUSED 1000 MG AT WEEL Q2 AND THEN EVERY 16 WEEKS
     Route: 042

REACTIONS (2)
  - No adverse event [Unknown]
  - Off label use [Unknown]
